FAERS Safety Report 5920235-6 (Version None)
Quarter: 2008Q4

REPORT INFORMATION
  Report Type: 
  Country: None (occurrence: None)
  Receive Date: 20081014
  Receipt Date: 20080926
  Transmission Date: 20090506
  Serious: Yes (Disabling)
  Sender: FDA-Public Use
  Company Number: 2008AL011046

PATIENT
  Age: 57 Year
  Sex: Female

DRUGS (3)
  1. MIRTAZAPINE [Suspect]
     Indication: DEPRESSION
     Dosage: 30 MG; PO
     Route: 048
     Dates: start: 20080303, end: 20080811
  2. VENLAFAXINE HCL [Concomitant]
  3. SIMVASTATIN [Concomitant]

REACTIONS (4)
  - AMNESIA [None]
  - HYPERPHAGIA [None]
  - SOMNAMBULISM [None]
  - UNRESPONSIVE TO STIMULI [None]
